FAERS Safety Report 4920111-1 (Version None)
Quarter: 2006Q1

REPORT INFORMATION
  Report Type: 
  Country: None (occurrence: None)
  Receive Date: 20060217
  Receipt Date: 20060206
  Transmission Date: 20060701
  Serious: Yes (Hospitalization)
  Sender: FDA-Public Use
  Company Number: 13453

PATIENT
  Age: 21 Year
  Sex: Male
  Weight: 72 kg

DRUGS (20)
  1. METHOTREXATE [Suspect]
     Indication: CHEMOTHERAPY
     Dosage: 12.5 MG DAILY IT
     Route: 037
     Dates: start: 20051025, end: 20051129
  2. TAZOCIN [Concomitant]
  3. GENTAMICIN [Concomitant]
  4. RASBURICASE [Concomitant]
  5. CORSODYL [Concomitant]
  6. OMEPRAZOLE [Concomitant]
  7. GRANISETRON [Concomitant]
  8. VANCOMYCIN [Concomitant]
  9. CIPROFLOXACIN [Concomitant]
  10. FLUCONAZOLE [Concomitant]
  11. METOCLOPRAMIDE [Concomitant]
  12. GAVISCON [Concomitant]
  13. FRUSEMIDE [Concomitant]
  14. VITAMIN K [Concomitant]
  15. LACTULOSE [Concomitant]
  16. CO-TRIMAZOLE [Concomitant]
  17. DOMPERIDONE [Concomitant]
  18. NYSTATIN [Concomitant]
  19. RANITIDINE [Concomitant]
  20. SENNA [Concomitant]

REACTIONS (6)
  - ASTHENIA [None]
  - DYSPHAGIA [None]
  - DYSPHASIA [None]
  - FACIAL PARESIS [None]
  - HYPOAESTHESIA [None]
  - PARAESTHESIA [None]
